FAERS Safety Report 8655072 (Version 3)
Quarter: 2012Q4

REPORT INFORMATION
  Report Type: 
  Country: US (occurrence: US)
  Receive Date: 20120709
  Receipt Date: 20121030
  Transmission Date: 20130627
  Serious: Yes (Hospitalization)
  Sender: FDA-Public Use
  Company Number: US-US-EMD SERONO, INC.-7144466

PATIENT
  Age: 50 Year
  Sex: Female

DRUGS (2)
  1. REBIF [Suspect]
     Indication: MULTIPLE SCLEROSIS
     Route: 058
     Dates: start: 20110726, end: 201207
  2. REBIF [Suspect]
     Route: 058
     Dates: start: 201207

REACTIONS (3)
  - Optic neuritis [Recovering/Resolving]
  - Memory impairment [Unknown]
  - Hepatic enzyme abnormal [Unknown]
